FAERS Safety Report 4522320-2 (Version None)
Quarter: 2004Q4

REPORT INFORMATION
  Report Type: 
  Country: None (occurrence: None)
  Receive Date: 20041116
  Receipt Date: 20040819
  Transmission Date: 20050328
  Serious: No
  Sender: FDA-Public Use
  Company Number: S04-USA-05596-01

PATIENT
  Age: 84 Year
  Sex: Female

DRUGS (9)
  1. NAMENDA [Suspect]
     Indication: DEMENTIA
     Dosage: 5 MG QD PO
     Route: 048
     Dates: start: 20040806, end: 20040809
  2. EXELON [Concomitant]
  3. LIPITOR [Concomitant]
  4. MAXZIDE [Concomitant]
  5. ACCUPRIL [Concomitant]
  6. DETROL [Concomitant]
  7. EFFEXOR [Concomitant]
  8. CALCIUM [Concomitant]
  9. CENTRUM [Concomitant]

REACTIONS (5)
  - AGITATION [None]
  - CONFUSIONAL STATE [None]
  - GENERAL PHYSICAL HEALTH DETERIORATION [None]
  - VOMITING [None]
  - WEIGHT DECREASED [None]
